FAERS Safety Report 9301435 (Version 1)
Quarter: 2013Q2

REPORT INFORMATION
  Report Type: Spontaneous
  Country: US (occurrence: US)
  Receive Date: 20130521
  Receipt Date: 20130521
  Transmission Date: 20140414
  Serious: No
  Sender: FDA-Public Use
  Company Number: US-ASTRAZENECA-2013SE32207

PATIENT
  Sex: Female

DRUGS (2)
  1. ATACAND HCT [Suspect]
     Indication: BLOOD PRESSURE ABNORMAL
     Route: 048
  2. LOSARTEN [Suspect]
     Indication: BLOOD PRESSURE ABNORMAL
     Route: 065
     Dates: start: 2013

REACTIONS (4)
  - Headache [Unknown]
  - Blood pressure abnormal [Unknown]
  - Malaise [Unknown]
  - Intentional drug misuse [Unknown]
